FAERS Safety Report 20771008 (Version 1)
Quarter: 2022Q2

REPORT INFORMATION
  Report Type: Spontaneous
  Country: BR (occurrence: BR)
  Receive Date: 20220429
  Receipt Date: 20220429
  Transmission Date: 20220721
  Serious: Yes (Other)
  Sender: FDA-Public Use
  Company Number: BR-BIOMARINAP-BR-2022-142953

PATIENT
  Sex: Male

DRUGS (1)
  1. BRINEURA [Suspect]
     Active Substance: CERLIPONASE ALFA
     Indication: Neuronal ceroid lipofuscinosis
     Dosage: 300 MILLIGRAM, QOW
     Route: 020
     Dates: start: 20210726

REACTIONS (4)
  - Seizure [Unknown]
  - Disease progression [Unknown]
  - Ataxia [Unknown]
  - Tremor [Unknown]
